FAERS Safety Report 8956676 (Version 3)
Quarter: 2013Q1

REPORT INFORMATION
  Report Type: Spontaneous
  Country: US (occurrence: US)
  Receive Date: 20121210
  Receipt Date: 20130123
  Transmission Date: 20140127
  Serious: No
  Sender: FDA-Public Use
  Company Number: US-PFIZER INC-2012307735

PATIENT
  Age: 47 Year
  Sex: Female

DRUGS (1)
  1. LYRICA [Suspect]
     Dosage: 100 MG, 1 QHS
     Route: 048

REACTIONS (1)
  - Pain [Unknown]
